FAERS Safety Report 4524633-7 (Version None)
Quarter: 2004Q4

REPORT INFORMATION
  Report Type: 
  Country: None (occurrence: None)
  Receive Date: 20041117
  Receipt Date: 20030612
  Transmission Date: 20050328
  Serious: Yes (Other)
  Sender: FDA-Public Use
  Company Number: C2003-1499.01

PATIENT
  Age: 25 Year
  Sex: Female

DRUGS (12)
  1. CLOZAPINE [Suspect]
     Indication: PSYCHOTIC DISORDER
     Dosage: 25MG Q HS ORAL
     Route: 048
     Dates: start: 20030320, end: 20030723
  2. CLOZAPINE [Suspect]
     Indication: SCHIZOPHRENIA
     Dosage: 25MG Q HS ORAL
     Route: 048
     Dates: start: 20030320, end: 20030723
  3. CLOZAPINE [Suspect]
     Indication: PSYCHOTIC DISORDER
     Dosage: 100 MG BID, ORAL
     Route: 048
     Dates: start: 20030320, end: 20030723
  4. CLOZAPINE [Suspect]
     Indication: SCHIZOPHRENIA
     Dosage: 100 MG BID, ORAL
     Route: 048
     Dates: start: 20030320, end: 20030723
  5. CELECOXIB [Concomitant]
  6. DIVALPROEX SODIUM [Concomitant]
  7. GLYCOPYRROLATE [Concomitant]
  8. HYDROXYCHLOROQUINE SULFATE [Concomitant]
  9. OMEPRAZOLE [Concomitant]
  10. OXYBUTYNIN CHLORIDE [Concomitant]
  11. RANITIDINE [Concomitant]
  12. ZIPRASIDONE [Concomitant]

REACTIONS (1)
  - NEUTROPENIA [None]
